FAERS Safety Report 14671317 (Version 1)
Quarter: 2018Q1

REPORT INFORMATION
  Report Type: Spontaneous
  Country: FR (occurrence: FR)
  Receive Date: 20180323
  Receipt Date: 20180323
  Transmission Date: 20180509
  Serious: Yes (Other)
  Sender: FDA-Public Use
  Company Number: FR-MERCK KGAA-2044347

PATIENT
  Age: 70 Year
  Sex: Female

DRUGS (1)
  1. NOVOTHYROX [Suspect]
     Active Substance: LEVOTHYROXINE SODIUM
     Indication: HYPOTHYROIDISM

REACTIONS (29)
  - Asthenia [Recovering/Resolving]
  - Mood altered [None]
  - Decreased activity [None]
  - Emotional distress [None]
  - Fear of death [None]
  - Syncope [Recovering/Resolving]
  - White blood cell count increased [None]
  - Bradycardia [None]
  - Depression [None]
  - Loss of personal independence in daily activities [None]
  - Fatigue [None]
  - Loss of libido [None]
  - Red blood cell count increased [None]
  - Protein urine present [None]
  - Dizziness [None]
  - Headache [None]
  - Irritability [None]
  - Pain [Recovering/Resolving]
  - Blood creatinine increased [None]
  - Chest pain [Recovering/Resolving]
  - Cough [None]
  - Anxiety [None]
  - Blood potassium increased [None]
  - Dyspnoea [None]
  - Gait disturbance [None]
  - Glomerular filtration rate decreased [None]
  - Malaise [None]
  - Tension [None]
  - Dysstasia [None]

NARRATIVE: CASE EVENT DATE: 201704
